FAERS Safety Report 4294199-8 (Version None)
Quarter: 2004Q1

REPORT INFORMATION
  Report Type: 
  Country: None (occurrence: None)
  Receive Date: 20040211
  Receipt Date: 20040203
  Transmission Date: 20041129
  Serious: Yes (Other)
  Sender: FDA-Public Use
  Company Number: 2004197866JP

PATIENT

DRUGS (1)
  1. XALATAN [Suspect]
     Indication: INTRAOCULAR PRESSURE INCREASED
     Dosage: 1 GTT, QD, OPTHALMIC
     Route: 047

REACTIONS (3)
  - CHOROIDAL DETACHMENT [None]
  - INTRAOCULAR PRESSURE DECREASED [None]
  - VISUAL FIELD DEFECT [None]
